FAERS Safety Report 5492020-3 (Version None)
Quarter: 2007Q4

REPORT INFORMATION
  Report Type: 
  Country: None (occurrence: None)
  Receive Date: 20071022
  Receipt Date: 20071011
  Transmission Date: 20080405
  Serious: Yes (Hospitalization)
  Sender: FDA-Public Use
  Company Number: PHEH2007US09024

PATIENT
  Sex: Female

DRUGS (1)
  1. ZELNORM [Suspect]
     Dosage: UNK, UNK
     Dates: start: 20030701, end: 20070101

REACTIONS (3)
  - ANGINA PECTORIS [None]
  - CATHETERISATION CARDIAC [None]
  - CHEST DISCOMFORT [None]
